FAERS Safety Report 7306627-1 (Version None)
Quarter: 2011Q1

REPORT INFORMATION
  Report Type: 
  Country: None (occurrence: None)
  Receive Date: 20110222
  Receipt Date: 20110218
  Transmission Date: 20110831
  Serious: Yes (Other)
  Sender: FDA-Public Use
  Company Number: US-PFIZER INC-2011021085

PATIENT
  Sex: Female
  Weight: 113.4 kg

DRUGS (14)
  1. ALDACTONE [Concomitant]
     Dosage: UNK
  2. SINGULAIR [Concomitant]
     Dosage: UNK
  3. CHANTIX [Suspect]
     Dosage: 1 MG, 2X/DAY
     Route: 048
     Dates: start: 20110101, end: 20110215
  4. ZOCOR [Concomitant]
     Dosage: UNK
  5. PROTONIX [Concomitant]
     Indication: GASTRIC ULCER
     Dosage: UNK
  6. GLIPIZIDE [Concomitant]
     Dosage: UNK
  7. LASIX [Concomitant]
     Dosage: UNK
  8. CHANTIX [Suspect]
     Dosage: 0.5 MG, 2X/DAY
     Route: 048
     Dates: start: 20110101
  9. ASPIRIN [Concomitant]
     Dosage: UNK
  10. VITAMIN D [Concomitant]
     Dosage: UNK
  11. CHANTIX [Suspect]
     Indication: SMOKING CESSATION THERAPY
     Dosage: 0.5 MG, 1X/DAY
     Route: 048
     Dates: start: 20110122
  12. CHANTIX [Suspect]
     Dosage: UNK
     Route: 048
     Dates: start: 20110101
  13. COREG [Concomitant]
     Dosage: UNK
  14. MISOPROSTOL [Concomitant]
     Dosage: UNK

REACTIONS (2)
  - MUCOSA VESICLE [None]
  - TONGUE BLISTERING [None]
